FAERS Safety Report 24719623 (Version 1)
Quarter: 2024Q4

REPORT INFORMATION
  Report Type: Spontaneous
  Country: US (occurrence: US)
  Receive Date: 20241211
  Receipt Date: 20241211
  Transmission Date: 20250114
  Serious: Yes (Life-Threatening, Other)
  Sender: AUROBINDO
  Company Number: US-AUROBINDO-AUR-APL-2024-057650

PATIENT
  Age: 6 Decade
  Sex: Male

DRUGS (14)
  1. LENALIDOMIDE [Suspect]
     Active Substance: LENALIDOMIDE
     Indication: Rosai-Dorfman syndrome
     Dosage: 15 MG DAILY FOR 3 WEEKS FOLLOWED BY 1 WEEK OFF THERAPY
     Route: 065
  2. PREDNISONE [Suspect]
     Active Substance: PREDNISONE
     Indication: Respiratory distress
     Dosage: 40 MG DAILY (WHICH WAS TAPERED OFF AFTER A SHORT INITIAL COURSE)
     Route: 048
  3. PREDNISONE [Suspect]
     Active Substance: PREDNISONE
     Indication: Hypoxia
     Dosage: 30?40 MG DAILY
     Route: 048
  4. PREDNISONE [Suspect]
     Active Substance: PREDNISONE
     Indication: Rosai-Dorfman syndrome
     Dosage: 30 MG DAILY
     Route: 048
  5. PREDNISONE [Suspect]
     Active Substance: PREDNISONE
     Dosage: 1 MG DAILY
     Route: 048
  6. FILGRASTIM [Suspect]
     Active Substance: FILGRASTIM
     Indication: Rosai-Dorfman syndrome
     Dosage: UNK
     Route: 065
  7. FILGRASTIM [Suspect]
     Active Substance: FILGRASTIM
     Indication: Neutropenia
  8. RITUXIMAB [Suspect]
     Active Substance: RITUXIMAB
     Indication: Rosai-Dorfman syndrome
     Dosage: 500 MG/M2  PER DOSE WEEKLY FOR 4 WEEKS, THEN EVERY 2 MONTHS AND SUBSEQUENTLY EVERY 3 MONTHS
     Route: 065
  9. DEXAMETHASONE [Concomitant]
     Active Substance: DEXAMETHASONE
     Indication: Rosai-Dorfman syndrome
     Dosage: 4 MG FROM MONDAY TO FRIDAY WEEKLY
     Route: 065
  10. SULFAMETHOXAZOLE\TRIMETHOPRIM [Concomitant]
     Active Substance: SULFAMETHOXAZOLE\TRIMETHOPRIM
     Indication: Neutropenia
     Dosage: UNK
     Route: 065
  11. UNSPECIFIED INGREDIENT [Concomitant]
     Active Substance: UNSPECIFIED INGREDIENT
     Indication: Neutropenia
     Dosage: UNK
     Route: 065
  12. TAZEMETOSTAT [Concomitant]
     Active Substance: TAZEMETOSTAT
     Indication: Neutropenia
     Dosage: UNK
     Route: 065
  13. SIROLIMUS [Concomitant]
     Active Substance: SIROLIMUS
     Indication: Neutropenia
     Dosage: 4 MG DAILY
     Route: 048
  14. SIROLIMUS [Concomitant]
     Active Substance: SIROLIMUS
     Dosage: LATER INCREASED TO 6 MG ORALLY
     Route: 048

REACTIONS (4)
  - Neutropenia [Unknown]
  - Cytopenia [Unknown]
  - Rebound effect [Unknown]
  - Drug ineffective [Unknown]
